FAERS Safety Report 20660705 (Version 2)
Quarter: 2023Q4

REPORT INFORMATION
  Report Type: Spontaneous
  Country: US (occurrence: US)
  Receive Date: 20220331
  Receipt Date: 20231006
  Transmission Date: 20240109
  Serious: Yes (Other)
  Sender: FDA-Public Use
  Company Number: US-COOPERSURGICAL, INC.-US-2022CPS000861

PATIENT
  Age: 31 Year
  Sex: Female
  Weight: 72.562 kg

DRUGS (1)
  1. PARAGARD T 380A [Suspect]
     Active Substance: COPPER
     Indication: Contraception
     Dosage: UNK
     Route: 015
     Dates: start: 20070620, end: 20171011

REACTIONS (18)
  - Road traffic accident [Unknown]
  - Device breakage [Recovered/Resolved]
  - Foreign body in reproductive tract [Not Recovered/Not Resolved]
  - Complication of device removal [Recovered/Resolved]
  - Embedded device [Recovered/Resolved]
  - Pain [Unknown]
  - Emotional distress [Unknown]
  - Reproductive complication associated with device [Unknown]
  - Procedural haemorrhage [Recovered/Resolved]
  - Anxiety [Unknown]
  - Depression [Unknown]
  - Giardiasis [Recovered/Resolved]
  - Haemorrhoids [Unknown]
  - Muscle strain [Unknown]
  - Overweight [Unknown]
  - Back pain [Unknown]
  - Device use issue [Unknown]
  - Diarrhoea [Unknown]

NARRATIVE: CASE EVENT DATE: 20101001
